FAERS Safety Report 7375555-8 (Version None)
Quarter: 2011Q1

REPORT INFORMATION
  Report Type: 
  Country: None (occurrence: None)
  Receive Date: 20110325
  Receipt Date: 20100907
  Transmission Date: 20110831
  Serious: Yes (Hospitalization, Other)
  Sender: FDA-Public Use
  Company Number: US-BAYER-201014277NA

PATIENT
  Sex: Female
  Weight: 206 kg

DRUGS (8)
  1. PENICILLIN VK [Concomitant]
     Dates: start: 20080201
  2. IBUPROFEN [Concomitant]
     Dates: start: 20080201
  3. AUGMENTIN XR [Concomitant]
     Dates: start: 20040501
  4. ATENOLOL [Concomitant]
     Indication: WOLFF-PARKINSON-WHITE SYNDROME
     Dosage: DAILY DOSE 100 MG
     Dates: start: 20000101
  5. NITROFURANTOIN [Concomitant]
     Dates: start: 20070101
  6. NAPROXEN [Concomitant]
     Dates: start: 20040101
  7. YAZ [Suspect]
     Indication: ORAL CONTRACEPTION
     Route: 048
     Dates: start: 20070501, end: 20090222
  8. AMOXICILLIN [Concomitant]
     Dates: start: 20060501

REACTIONS (6)
  - PULMONARY EMBOLISM [None]
  - HEADACHE [None]
  - FATIGUE [None]
  - DEEP VEIN THROMBOSIS [None]
  - OEDEMA PERIPHERAL [None]
  - DYSPNOEA [None]
